FAERS Safety Report 7752895 (Version 2)
Quarter: 2013Q3

REPORT INFORMATION
  Report Type: Spontaneous
  Country: DE (occurrence: DE)
  Receive Date: 20110107
  Receipt Date: 20130809
  Transmission Date: 20140515
  Serious: Yes (Death, Other)
  Sender: FDA-Public Use
  Company Number: DE-RB-020179-11

PATIENT
  Age: 30 Year
  Sex: Male

DRUGS (2)
  1. SUBUTEX [Suspect]
     Indication: PRODUCT USED FOR UNKNOWN INDICATION
     Dosage: DOSING DETAILS UNKNOWN
     Route: 065
  2. SUBUTEX [Suspect]
     Route: 042
     Dates: end: 2007

REACTIONS (2)
  - Endocarditis [Fatal]
  - Intentional drug misuse [Recovered/Resolved]
